FAERS Safety Report 9286003 (Version 1)
Quarter: 2013Q2

REPORT INFORMATION
  Report Type: Spontaneous
  Country: FI (occurrence: FI)
  Receive Date: 20130513
  Receipt Date: 20130513
  Transmission Date: 20140414
  Serious: Yes (Death)
  Sender: FDA-Public Use
  Company Number: FI-ASTRAZENECA-2013SE32222

PATIENT
  Age: 86 Year
  Sex: Female
  Weight: 75 kg

DRUGS (3)
  1. BUPIVACAINE [Suspect]
     Indication: ANAESTHESIA
     Route: 037
  2. FENTANYL [Suspect]
     Indication: ANAESTHESIA
     Dosage: 5 UG/ML AT 4 ML/H
     Route: 008
  3. LEVOBUPIVACAINE [Suspect]
     Indication: ANAESTHESIA
     Dosage: 1.25 MG/ML AT 4 ML/H
     Route: 008

REACTIONS (2)
  - Radiculitis [Fatal]
  - Paraplegia [Fatal]
